FAERS Safety Report 7909131-2 (Version None)
Quarter: 2011Q4

REPORT INFORMATION
  Report Type: 
  Country: None (occurrence: None)
  Receive Date: 20111111
  Receipt Date: 20101026
  Transmission Date: 20120403
  Serious: No
  Sender: FDA-Public Use
  Company Number: US-GLAXOSMITHKLINE-A0888815A

PATIENT
  Sex: Female

DRUGS (7)
  1. COREG [Suspect]
     Indication: HYPERTENSION
     Dosage: 10MG PER DAY
  2. MECLIZINE [Concomitant]
  3. AGGRENOX [Concomitant]
  4. LORAZEPAM [Concomitant]
  5. CRESTOR [Concomitant]
  6. LEXAPRO [Concomitant]
  7. OMEPRAZOLE [Concomitant]

REACTIONS (1)
  - DIZZINESS [None]
